FAERS Safety Report 9501505 (Version 1)
Quarter: 2013Q3

REPORT INFORMATION
  Report Type: Spontaneous
  Country: IT (occurrence: IT)
  Receive Date: 20130905
  Receipt Date: 20130905
  Transmission Date: 20140515
  Serious: Yes (Hospitalization, Other)
  Sender: FDA-Public Use
  Company Number: IT-PFIZER INC-2013252601

PATIENT
  Age: 53 Year
  Sex: Female

DRUGS (4)
  1. AMOXICILLIN TRIHYDRATE/CLAVULANATE POTASSIUM [Suspect]
     Indication: OROPHARYNGEAL PAIN
     Dosage: UNK
     Route: 065
  2. AMOXICILLIN TRIHYDRATE/CLAVULANATE POTASSIUM [Suspect]
     Indication: PYREXIA
  3. AMOXICILLIN TRIHYDRATE/CLAVULANATE POTASSIUM [Suspect]
     Indication: LYMPHADENOPATHY
  4. SULFASALAZINE [Suspect]
     Indication: SPINAL OSTEOARTHRITIS
     Dosage: UPTO 2 GM/ DAY
     Route: 065

REACTIONS (11)
  - Drug reaction with eosinophilia and systemic symptoms [Recovering/Resolving]
  - Pleural effusion [Recovering/Resolving]
  - Hepatomegaly [Recovering/Resolving]
  - Splenomegaly [Recovering/Resolving]
  - Condition aggravated [Recovering/Resolving]
  - Lymphadenopathy [Recovered/Resolved]
  - Rash [Recovered/Resolved]
  - Rash pruritic [Recovered/Resolved]
  - Blister [Recovering/Resolving]
  - Face oedema [Recovering/Resolving]
  - Pyrexia [Recovered/Resolved]
